FAERS Safety Report 9651992 (Version 1)
Quarter: 2013Q4

REPORT INFORMATION
  Report Type: Spontaneous
  Country: US (occurrence: US)
  Receive Date: 20131029
  Receipt Date: 20131029
  Transmission Date: 20140711
  Serious: No
  Sender: FDA-Public Use
  Company Number: US-PFIZER INC-2013307750

PATIENT
  Age: 74 Year
  Sex: Female
  Weight: 78.91 kg

DRUGS (1)
  1. CELEBREX [Suspect]
     Indication: KNEE ARTHROPLASTY
     Dosage: 200 MG, 2X/DAY
     Dates: start: 20130812, end: 20131026

REACTIONS (6)
  - Pruritus [Unknown]
  - Burning sensation [Unknown]
  - Paraesthesia [Unknown]
  - Nausea [Unknown]
  - Local swelling [Unknown]
  - Abdominal discomfort [Unknown]
